FAERS Safety Report 8855028 (Version 2)
Quarter: 2012Q4

REPORT INFORMATION
  Report Type: 
  Country: AT (occurrence: AT)
  Receive Date: 20121023
  Receipt Date: 20121220
  Transmission Date: 20130627
  Serious: Yes (Other)
  Sender: FDA-Public Use
  Company Number: PHHY2012AT094494

PATIENT
  Age: 87 Year
  Sex: Male
  Weight: 80 kg

DRUGS (5)
  1. ACLASTA [Suspect]
     Indication: OSTEOPOROSIS
     Dosage: UNK UKN, UNK
     Route: 042
     Dates: start: 20111229
  2. ACLASTA [Suspect]
     Dosage: UNK UKN, UNK
     Route: 042
  3. LOSARTAN HYDROCHLOROTHIAZIDE TEVA [Concomitant]
     Dosage: 1x 100/12.5
     Route: 048
  4. PLAVIX [Concomitant]
     Dosage: 1x75
     Route: 048
  5. SIMVASTATIN [Concomitant]
     Dosage: 1x4
     Route: 048
     Dates: start: 20111229

REACTIONS (2)
  - Blindness unilateral [Recovered/Resolved]
  - Transient ischaemic attack [Recovered/Resolved]
